FAERS Safety Report 14860742 (Version 5)
Quarter: 2020Q4

REPORT INFORMATION
  Report Type: Report from Study
  Country: CA (occurrence: CA)
  Receive Date: 20180508
  Receipt Date: 20201224
  Transmission Date: 20210113
  Serious: Yes (Hospitalization)
  Sender: FDA-Public Use
  Company Number: CA-GLAXOSMITHKLINE-CA2018GSK074841

PATIENT
  Sex: Female

DRUGS (18)
  1. MEPOLIZUMAB [Suspect]
     Active Substance: MEPOLIZUMAB
     Dosage: 100 MG, Z (MONTHLY)
     Route: 042
  2. ADVAIR DISKUS [Suspect]
     Active Substance: FLUTICASONE PROPIONATE\SALMETEROL XINAFOATE
     Indication: ASTHMA
     Dosage: 1 PUFF(S), BID, 500 CC
     Route: 055
  3. FLOVENT DISKUS [Suspect]
     Active Substance: FLUTICASONE PROPIONATE
     Dosage: 3 PUFF(S), BID, AS NEEDED
     Route: 055
  4. VENTOLIN [Suspect]
     Active Substance: ALBUTEROL SULFATE
     Indication: ASTHMA
     Dosage: 1 PUFF(S),PRN
  5. FLOVENT DISKUS [Suspect]
     Active Substance: FLUTICASONE PROPIONATE
     Indication: ASTHMA
     Dosage: 1 PUFF(S), BID, 500 CC
     Route: 055
  6. MAVIK [Concomitant]
     Active Substance: TRANDOLAPRIL
     Indication: PRODUCT USED FOR UNKNOWN INDICATION
     Dosage: UNK
  7. ATROVENT [Concomitant]
     Active Substance: IPRATROPIUM BROMIDE
     Indication: PRODUCT USED FOR UNKNOWN INDICATION
     Dosage: 1 DF, Z, SPRAY
  8. MEPOLIZUMAB [Suspect]
     Active Substance: MEPOLIZUMAB
     Indication: ASTHMA
     Dosage: 100 MG, Z, (MONTHLY)
     Route: 042
     Dates: start: 20171018
  9. SINGULAIR [Suspect]
     Active Substance: MONTELUKAST SODIUM
     Indication: ASTHMA
     Dosage: 10 MG, QD
  10. SERTRALINE [Concomitant]
     Active Substance: SERTRALINE HYDROCHLORIDE
     Indication: PRODUCT USED FOR UNKNOWN INDICATION
     Dosage: UNK
  11. ALLOPURINOL. [Concomitant]
     Active Substance: ALLOPURINOL
     Indication: PRODUCT USED FOR UNKNOWN INDICATION
     Dosage: UNK
  12. PTU [Concomitant]
     Active Substance: PROPYLTHIOURACIL
     Indication: PRODUCT USED FOR UNKNOWN INDICATION
     Dosage: UNK
  13. PANTOLOC [Concomitant]
     Active Substance: PANTOPRAZOLE SODIUM
     Indication: PRODUCT USED FOR UNKNOWN INDICATION
     Dosage: 40 MG, BID
  14. AMLODIPINE [Concomitant]
     Active Substance: AMLODIPINE BESYLATE
     Indication: PRODUCT USED FOR UNKNOWN INDICATION
     Dosage: UNK
  15. TRAZODONE [Concomitant]
     Active Substance: TRAZODONE HYDROCHLORIDE
     Indication: PRODUCT USED FOR UNKNOWN INDICATION
     Dosage: UNK
  16. CROMOLYN NASAL SPRAY [Concomitant]
     Indication: PRODUCT USED FOR UNKNOWN INDICATION
     Dosage: UNK
  17. ZANTAC [Concomitant]
     Active Substance: RANITIDINE HYDROCHLORIDE
     Indication: PRODUCT USED FOR UNKNOWN INDICATION
     Dosage: 150 MG, BID
  18. SENOKOT [Concomitant]
     Active Substance: SENNOSIDES
     Indication: PRODUCT USED FOR UNKNOWN INDICATION
     Dosage: UNK

REACTIONS (18)
  - Asthma [Recovered/Resolved]
  - Back pain [Unknown]
  - Wheezing [Unknown]
  - Hyperhidrosis [Unknown]
  - Intervertebral disc degeneration [Unknown]
  - Therapeutic product effect incomplete [Unknown]
  - Oropharyngeal pain [Recovered/Resolved]
  - Pyrexia [Unknown]
  - Dysphonia [Not Recovered/Not Resolved]
  - Aphonia [Recovered/Resolved]
  - Sputum discoloured [Unknown]
  - Vertigo [Unknown]
  - Blood count abnormal [Unknown]
  - Chills [Unknown]
  - Cough [Unknown]
  - Dyspnoea [Unknown]
  - Chest discomfort [Unknown]
  - Loss of personal independence in daily activities [Unknown]
